FAERS Safety Report 9905851 (Version 1)
Quarter: 2014Q1

REPORT INFORMATION
  Report Type: Spontaneous
  Country: CO (occurrence: CO)
  Receive Date: 20140218
  Receipt Date: 20140218
  Transmission Date: 20141002
  Serious: Yes (Other)
  Sender: FDA-Public Use
  Company Number: CO-JNJFOC-20140208948

PATIENT
  Age: 3 Year
  Sex: Male

DRUGS (2)
  1. REMICADE [Suspect]
     Indication: COLITIS ULCERATIVE
     Route: 042
     Dates: start: 20140121
  2. REMICADE [Suspect]
     Indication: COLITIS ULCERATIVE
     Route: 042
     Dates: start: 20140204

REACTIONS (7)
  - Cyanosis [Unknown]
  - Tachycardia [Unknown]
  - Skin lesion [Recovering/Resolving]
  - Nausea [Unknown]
  - Infusion related reaction [Unknown]
  - Off label use [Unknown]
  - Drug intolerance [Unknown]
